FAERS Safety Report 18158001 (Version 1)
Quarter: 2020Q3

REPORT INFORMATION
  Report Type: Spontaneous
  Country: US (occurrence: US)
  Receive Date: 20200817
  Receipt Date: 20200817
  Transmission Date: 20201103
  Serious: No
  Sender: FDA-Public Use
  Company Number: US-MEDEXUS PHARMA, INC.-2020MED00139

PATIENT
  Age: 61 Year
  Sex: Female
  Weight: 58.96 kg

DRUGS (6)
  1. FOLIC ACID. [Concomitant]
     Active Substance: FOLIC ACID
     Dosage: 1 MG, 1X/DAY
  2. RASUVO [Suspect]
     Active Substance: METHOTREXATE SODIUM
     Indication: RHEUMATOID ARTHRITIS
     Dosage: 25 MG, 1X/WEEK ON WEDNESDAYS INJECTED INTO THIGHS
  3. RASUVO [Suspect]
     Active Substance: METHOTREXATE SODIUM
     Dosage: 25 MG, 1X/WEEK ON WEDNESDAYS INJECTED INTO STOMACH
     Dates: start: 20200520, end: 20200520
  4. RESTASIS [Concomitant]
     Active Substance: CYCLOSPORINE
  5. RASUVO [Suspect]
     Active Substance: METHOTREXATE SODIUM
     Dosage: 25 MG, 1X/WEEK ON WEDNESDAYS INJECTED INTO THIGH
     Dates: start: 20200520
  6. DYAZIDE (GENERIC) [Concomitant]
     Dosage: 1 DOSAGE UNITS (37.5MG/25 MG), 1X/DAY

REACTIONS (3)
  - Device failure [Recovered/Resolved]
  - Scratch [Not Recovered/Not Resolved]
  - Accidental exposure to product [Recovered/Resolved]

NARRATIVE: CASE EVENT DATE: 20200520
